FAERS Safety Report 8433743-3 (Version None)
Quarter: 2012Q2

REPORT INFORMATION
  Report Type: 
  Country: None (occurrence: None)
  Receive Date: 20120323
  Receipt Date: 20110727
  Transmission Date: 20120825
  Serious: Yes (Hospitalization)
  Sender: FDA-Public Use
  Company Number: 163-21880-11073234

PATIENT
  Age: 81 Year
  Sex: Male

DRUGS (6)
  1. DEXAMETHASONE [Concomitant]
  2. ASPIRIN [Concomitant]
  3. AREDIA [Concomitant]
  4. REVLIMID [Suspect]
     Indication: MULTIPLE MYELOMA
     Dosage: 25 MG, X14, PO, 15 MG, X14, PO
     Route: 048
     Dates: start: 20110701
  5. REVLIMID [Suspect]
     Indication: MULTIPLE MYELOMA
     Dosage: 25 MG, X14, PO, 15 MG, X14, PO
     Route: 048
     Dates: start: 20110616, end: 20110101
  6. OXYCONTIN [Concomitant]

REACTIONS (1)
  - ASTHENIA [None]
